FAERS Safety Report 6130892-X (Version None)
Quarter: 2009Q1

REPORT INFORMATION
  Report Type: 
  Country: None (occurrence: None)
  Receive Date: 20090325
  Receipt Date: 20090324
  Transmission Date: 20090719
  Serious: Yes (Hospitalization)
  Sender: FDA-Public Use
  Company Number: US-BRISTOL-MYERS SQUIBB COMPANY-14558134

PATIENT
  Age: 87 Year
  Sex: Male

DRUGS (4)
  1. WARFARIN SODIUM [Suspect]
  2. PLAVIX [Suspect]
     Dosage: 75MG TABLETS
     Route: 048
  3. ASPIRIN [Suspect]
  4. LASIX [Concomitant]

REACTIONS (3)
  - GASTRIC ULCER [None]
  - HAEMORRHAGE [None]
  - OESOPHAGEAL ULCER [None]
